FAERS Safety Report 5104626-1 (Version None)
Quarter: 2006Q3

REPORT INFORMATION
  Report Type: 
  Country: None (occurrence: None)
  Receive Date: 20060731
  Receipt Date: 20050623
  Transmission Date: 20061208
  Serious: Yes (Hospitalization)
  Sender: FDA-Public Use
  Company Number: US-JNJFOC-20050606581

PATIENT
  Age: 52 Year
  Sex: Female

DRUGS (2)
  1. RISPERDAL CONSTA [Suspect]
     Indication: SCHIZOPHRENIA
     Dosage: INTRA-MUSCULAR
     Route: 030
     Dates: start: 20050501, end: 20050501
  2. RISPERDAL [Suspect]
     Indication: SCHIZOPHRENIA
     Dosage: ORAL
     Route: 048
     Dates: end: 20050501

REACTIONS (1)
  - NEUROLEPTIC MALIGNANT SYNDROME [None]
